FAERS Safety Report 6327428-7 (Version None)
Quarter: 2009Q3

REPORT INFORMATION
  Report Type: 
  Country: None (occurrence: None)
  Receive Date: 20090821
  Receipt Date: 20090805
  Transmission Date: 20100115
  Serious: Yes (Hospitalization, Other)
  Sender: FDA-Public Use
  Company Number: THQ2009A03511

PATIENT
  Age: 73 Year
  Sex: Male

DRUGS (8)
  1. LANSOPRAZOLE [Suspect]
     Indication: DRUG USE FOR UNKNOWN INDICATION
     Dosage: PER ORAL
     Route: 048
  2. FORADIL [Concomitant]
  3. GAVISCON [Concomitant]
  4. ALLOPURINOL [Concomitant]
  5. FENOFIBRATE [Concomitant]
  6. COAPROVEL (HYDROCHLOROTHIAZIDE, IRBESARTAN) [Concomitant]
  7. PROSCAR [Concomitant]
  8. ULTRACET [Concomitant]

REACTIONS (2)
  - NEOVASCULARISATION [None]
  - SCOTOMA [None]
